FAERS Safety Report 13774597 (Version 1)
Quarter: 2017Q3

REPORT INFORMATION
  Report Type: Spontaneous
  Country: US (occurrence: US)
  Receive Date: 20170720
  Receipt Date: 20170720
  Transmission Date: 20171127
  Serious: Yes (Hospitalization)
  Sender: FDA-Public Use
  Company Number: None

PATIENT
  Age: 62 Year
  Sex: Female
  Weight: 65.25 kg

DRUGS (1)
  1. BUPRENORHINE-NALOXONE TABLETS [Suspect]
     Active Substance: BUPRENORPHINE\NALOXONE
     Indication: DRUG WITHDRAWAL MAINTENANCE THERAPY
     Dosage: ?          OTHER STRENGTH:MG;QUANTITY:1 TABLET(S);?
     Route: 060
     Dates: start: 20170531, end: 20170603

REACTIONS (5)
  - Therapy change [None]
  - Dizziness [None]
  - Electrocardiogram abnormal [None]
  - Refusal of treatment by patient [None]
  - Dyspnoea [None]

NARRATIVE: CASE EVENT DATE: 20170603
